FAERS Safety Report 25012556 (Version 1)
Quarter: 2025Q1

REPORT INFORMATION
  Report Type: Spontaneous
  Country: IN (occurrence: IN)
  Receive Date: 20250226
  Receipt Date: 20250226
  Transmission Date: 20250409
  Serious: Yes (Death, Life-Threatening, Other)
  Sender: SUVEN PHARMACEUTICALS LIMITED
  Company Number: IN-Suven-000025

PATIENT
  Age: 3 Year
  Sex: Male

DRUGS (1)
  1. CHLOROQUINE PHOSPHATE [Suspect]
     Active Substance: CHLOROQUINE PHOSPHATE
     Indication: Malaria
     Route: 048

REACTIONS (1)
  - Toxic epidermal necrolysis [Fatal]
